FAERS Safety Report 25791767 (Version 1)
Quarter: 2025Q3

REPORT INFORMATION
  Report Type: Spontaneous
  Country: US (occurrence: None)
  Receive Date: 20250911
  Receipt Date: 20250911
  Transmission Date: 20251020
  Serious: Yes (Other)
  Sender: FDA-CTU
  Company Number: None

PATIENT
  Age: 42 Year
  Sex: Female

DRUGS (1)
  1. LIVDELZI [Suspect]
     Active Substance: SELADELPAR LYSINE
     Dosage: FREQUENCY : DAILY;?
     Route: 048
     Dates: start: 20250524, end: 20250908

REACTIONS (4)
  - Dizziness [None]
  - Loss of personal independence in daily activities [None]
  - Impaired work ability [None]
  - Fall [None]
